FAERS Safety Report 9506498 (Version 2)
Quarter: 2014Q1

REPORT INFORMATION
  Report Type: Report from Study
  Country: US (occurrence: US)
  Receive Date: 20130906
  Receipt Date: 20140219
  Transmission Date: 20141002
  Serious: Yes (Disabling)
  Sender: FDA-Public Use
  Company Number: PHEH2013US018671

PATIENT
  Sex: Female
  Weight: 69.39 kg

DRUGS (5)
  1. GILENYA [Suspect]
     Indication: MULTIPLE SCLEROSIS
     Dosage: 0.5 MG, QD
     Route: 048
     Dates: start: 20120801, end: 201302
  2. GILENYA [Suspect]
     Dosage: 0.5 MG, QD
     Route: 048
     Dates: start: 201302, end: 20130310
  3. PROVIGIL//MODAFINIL [Concomitant]
     Dosage: 100 MG, QD
     Route: 048
  4. CARBAMAZEPIN [Concomitant]
     Dosage: 100 MG, BID
     Route: 048
  5. LORAZEPAM [Concomitant]
     Dosage: 1 MG, QHS
     Route: 048

REACTIONS (2)
  - Swelling face [Recovered/Resolved]
  - Cough [Recovered/Resolved]
